FAERS Safety Report 8591485-8 (Version None)
Quarter: 2012Q3

REPORT INFORMATION
  Report Type: 
  Country: None (occurrence: None)
  Receive Date: 20120803
  Receipt Date: 20120803
  Transmission Date: 20120928
  Serious: Yes (Hospitalization)
  Sender: FDA-Public Use
  Company Number: None

PATIENT
  Age: 77 Year
  Sex: Male
  Weight: 72.6 kg

DRUGS (2)
  1. LORAZEPAM [Suspect]
     Indication: BIPOLAR DISORDER
     Dosage: 1 MG PRN PO
     Route: 048
     Dates: start: 20120404, end: 20120605
  2. LORAZEPAM [Suspect]
     Indication: MANIA
     Dosage: 1 MG PRN PO
     Route: 048
     Dates: start: 20120404, end: 20120605

REACTIONS (9)
  - AGITATION [None]
  - CONFUSIONAL STATE [None]
  - SCREAMING [None]
  - FALL [None]
  - DEPRESSION [None]
  - AGGRESSION [None]
  - DELIRIUM [None]
  - PSYCHOMOTOR HYPERACTIVITY [None]
  - REBOUND EFFECT [None]
